FAERS Safety Report 15741027 (Version 1)
Quarter: 2018Q4

REPORT INFORMATION
  Report Type: Spontaneous
  Country: JP (occurrence: JP)
  Receive Date: 20181219
  Receipt Date: 20181219
  Transmission Date: 20190205
  Serious: Yes (Other)
  Sender: FDA-Public Use
  Company Number: JP-SA-2018SA390262

PATIENT
  Age: 79 Year
  Sex: Female

DRUGS (1)
  1. SEVELAMER HYDROCHLORIDE. [Suspect]
     Active Substance: SEVELAMER HYDROCHLORIDE
     Indication: PRODUCT USED FOR UNKNOWN INDICATION
     Dosage: TABLET
     Route: 048

REACTIONS (2)
  - Hypermagnesaemia [Recovered/Resolved]
  - Blood pressure decreased [Unknown]
